FAERS Safety Report 12331273 (Version 1)
Quarter: 2016Q2

REPORT INFORMATION
  Report Type: Spontaneous
  Country: GB (occurrence: GB)
  Receive Date: 20160504
  Receipt Date: 20160504
  Transmission Date: 20160815
  Serious: Yes (Hospitalization)
  Sender: FDA-Public Use
  Company Number: GB-ACTAVIS-2016-09003

PATIENT
  Sex: Female

DRUGS (3)
  1. VARGATEF [Suspect]
     Active Substance: NINTEDANIB
     Indication: LUNG NEOPLASM MALIGNANT
     Dosage: UNK
     Route: 065
  2. VARGATEF [Suspect]
     Active Substance: NINTEDANIB
     Dosage: 150 MG, BID (300 MG)
     Route: 065
  3. DOCETAXEL (UNKNOWN) [Suspect]
     Active Substance: DOCETAXEL
     Indication: LUNG NEOPLASM MALIGNANT
     Dosage: UNK
     Route: 065

REACTIONS (2)
  - Urinary tract infection [Unknown]
  - Neutropenia [Recovered/Resolved]
